FAERS Safety Report 23686235 (Version 2)
Quarter: 2024Q4

REPORT INFORMATION
  Report Type: Report from Study
  Country: US (occurrence: US)
  Receive Date: 20240329
  Receipt Date: 20241114
  Transmission Date: 20250114
  Serious: Yes (Hospitalization, Other)
  Sender: AMNEAL
  Company Number: US-AMNEAL PHARMACEUTICALS-2024-AMRX-00945

PATIENT
  Sex: Male
  Weight: 74.83 kg

DRUGS (4)
  1. CARBIDOPA\LEVODOPA [Suspect]
     Active Substance: CARBIDOPA\LEVODOPA
     Indication: Parkinson^s disease
     Dosage: 1 (61.25-245 MG) CAPSULES, QID
     Route: 048
  2. CARBIDOPA\LEVODOPA [Suspect]
     Active Substance: CARBIDOPA\LEVODOPA
     Dosage: 1 (61.25-245 MG) CAPSULES, 3 /DAY
     Route: 048
     Dates: start: 20231017
  3. CARBIDOPA\LEVODOPA [Suspect]
     Active Substance: CARBIDOPA\LEVODOPA
     Dosage: 1 (61.25-245 MG) CAPSULES, 4 /DAY
     Route: 048
     Dates: start: 20231115
  4. CARBIDOPA\LEVODOPA [Suspect]
     Active Substance: CARBIDOPA\LEVODOPA
     Dosage: 1 (61.25-245 MG) CAPSULES, 3 /DAY
     Route: 048

REACTIONS (3)
  - Limb injury [Unknown]
  - Hip fracture [Unknown]
  - Hallucination [Unknown]
